FAERS Safety Report 4343256-6 (Version None)
Quarter: 2004Q1

REPORT INFORMATION
  Report Type: 
  Country: None (occurrence: None)
  Receive Date: 20040325
  Receipt Date: 20031121
  Transmission Date: 20041129
  Serious: No
  Sender: FDA-Public Use
  Company Number: USA031153231

PATIENT
  Age: 72 Year
  Sex: Female

DRUGS (9)
  1. FORTEO [Suspect]
     Dates: start: 20031119
  2. PREDNISONE [Concomitant]
  3. ALBUTEROL [Concomitant]
  4. ATROVENT [Concomitant]
  5. PLAVIX [Concomitant]
  6. PREVACID [Concomitant]
  7. ADVAIR DISKUS 100/50 [Concomitant]
  8. FLONASE [Concomitant]
  9. ATIVAN [Concomitant]

REACTIONS (3)
  - DISCOMFORT [None]
  - INSOMNIA [None]
  - MUSCLE CRAMP [None]
